FAERS Safety Report 8681071 (Version 3)
Quarter: 2012Q4

REPORT INFORMATION
  Report Type: Report from Study
  Country: US (occurrence: US)
  Receive Date: 20120724
  Receipt Date: 20121031
  Transmission Date: 20130627
  Serious: No
  Sender: FDA-Public Use
  Company Number: US-GILEAD-2012-0058176

PATIENT
  Age: 0 Year
  Sex: Female

DRUGS (4)
  1. EMTRICITABINE/TENOFOVIR DISOPROXIL FUMARATE [Suspect]
     Indication: HIV INFECTION
     Dosage: 1 DF, QD
     Route: 064
  2. KALETRA [Concomitant]
     Dosage: 2 UNK, UNK
     Route: 064
  3. KALETRA [Concomitant]
     Dosage: UNK UNK, QD
     Route: 064
     Dates: start: 20120510, end: 20120809
  4. RETROVIR [Concomitant]
     Dosage: UNK
     Dates: start: 20120809, end: 20120809

REACTIONS (1)
  - Cyst [Unknown]
